FAERS Safety Report 15694479 (Version 1)
Quarter: 2018Q4

REPORT INFORMATION
  Report Type: Spontaneous
  Country: US (occurrence: US)
  Receive Date: 20181126
  Receipt Date: 20181126
  Transmission Date: 20190205
  Serious: Yes (Hospitalization)
  Sender: FDA-Public Use
  Company Number: None

PATIENT
  Age: 18 Month
  Sex: Female
  Weight: 9.1 kg

DRUGS (1)
  1. CYTARABINE. [Suspect]
     Active Substance: CYTARABINE
     Dates: end: 20181108

REACTIONS (5)
  - Decreased activity [None]
  - Unresponsive to stimuli [None]
  - Post procedural complication [None]
  - Hypertonia [None]
  - Eye movement disorder [None]

NARRATIVE: CASE EVENT DATE: 20181117
